FAERS Safety Report 5155599-7 (Version None)
Quarter: 2006Q4

REPORT INFORMATION
  Report Type: 
  Country: None (occurrence: None)
  Receive Date: 20061113
  Receipt Date: 20060913
  Transmission Date: 20070319
  Serious: Yes (Other)
  Sender: FDA-Public Use
  Company Number: US017213

PATIENT
  Age: 51 Year
  Sex: Male
  Weight: 122.4712 kg

DRUGS (10)
  1. TRISENOX [Suspect]
     Indication: MULTIPLE MYELOMA
  2. DECADRON [Suspect]
     Dosage: 40 MG 4/28 DAYS
  3. ASCORBIC ACID [Suspect]
  4. METHOTREXATE [Suspect]
  5. ADRIAMYCIN PFS [Suspect]
  6. CYCLOPHOSPHAMIDE [Suspect]
  7. COREG [Concomitant]
  8. DIOVAN [Concomitant]
  9. COUMADIN [Concomitant]
  10. PRAVACHOL [Concomitant]

REACTIONS (2)
  - CATARACT [None]
  - VISION BLURRED [None]
